FAERS Safety Report 15258551 (Version 3)
Quarter: 2019Q3

REPORT INFORMATION
  Report Type: Spontaneous
  Country: US (occurrence: US)
  Receive Date: 20180809
  Receipt Date: 20190823
  Transmission Date: 20191004
  Serious: No
  Sender: FDA-Public Use
  Company Number: US-BIOGEN-2018BI00613012

PATIENT
  Sex: Male

DRUGS (2)
  1. ASPIRIN. [Concomitant]
     Active Substance: ASPIRIN
     Route: 065
  2. TECFIDERA [Suspect]
     Active Substance: DIMETHYL FUMARATE
     Indication: MULTIPLE SCLEROSIS
     Route: 050
     Dates: start: 20170209

REACTIONS (7)
  - Mental disorder [Unknown]
  - Dizziness [Unknown]
  - Product storage error [Unknown]
  - Flushing [Recovered/Resolved]
  - Feeling abnormal [Unknown]
  - Hallucination, visual [Unknown]
  - Cognitive disorder [Unknown]
